FAERS Safety Report 7299110-3 (Version None)
Quarter: 2011Q1

REPORT INFORMATION
  Report Type: 
  Country: None (occurrence: None)
  Receive Date: 20110217
  Receipt Date: 20110208
  Transmission Date: 20110831
  Serious: Yes (Hospitalization)
  Sender: FDA-Public Use
  Company Number: NL-JNJFOC-20110203218

PATIENT
  Sex: Male
  Weight: 57.5 kg

DRUGS (3)
  1. REMICADE [Suspect]
     Indication: CROHN'S DISEASE
     Route: 042
  2. PREDNISONE [Concomitant]
     Route: 048
  3. HUMIRA [Suspect]
     Indication: CROHN'S DISEASE

REACTIONS (2)
  - DIARRHOEA [None]
  - ABDOMINAL PAIN [None]
